FAERS Safety Report 17318920 (Version 1)
Quarter: 2020Q1

REPORT INFORMATION
  Report Type: Report from Study
  Country: ES (occurrence: ES)
  Receive Date: 20200124
  Receipt Date: 20200124
  Transmission Date: 20200409
  Serious: Yes (Hospitalization)
  Sender: FDA-Public Use
  Company Number: ES-ELI_LILLY_AND_COMPANY-ES202001006084

PATIENT
  Age: 74 Year
  Sex: Male

DRUGS (10)
  1. NOVONORM [Concomitant]
     Active Substance: REPAGLINIDE
     Indication: DIABETES MELLITUS MANAGEMENT
     Dosage: UNK
  2. MYFORTIC [Concomitant]
     Active Substance: MYCOPHENOLATE SODIUM
     Indication: RHEUMATOID ARTHRITIS
  3. LEDERFOLIN [Concomitant]
     Active Substance: LEUCOVORIN CALCIUM
     Indication: SUPPLEMENTATION THERAPY
     Dosage: UNK
  4. IMUREL [AZATHIOPRINE] [Concomitant]
     Active Substance: AZATHIOPRINE
     Indication: RHEUMATOID ARTHRITIS
  5. DACORTIN [Concomitant]
     Active Substance: PREDNISONE
     Indication: VASCULITIS
     Dosage: 10 UNK, UNKNOWN
     Route: 065
  6. MYFORTIC [Concomitant]
     Active Substance: MYCOPHENOLATE SODIUM
     Indication: VASCULITIS
     Dosage: UNK
     Dates: start: 201912
  7. TERIPARATIDE [Suspect]
     Active Substance: TERIPARATIDE
     Indication: SPINAL FRACTURE
  8. IMUREL [AZATHIOPRINE] [Concomitant]
     Active Substance: AZATHIOPRINE
     Indication: VASCULITIS
     Dosage: UNK
     Dates: start: 201907, end: 201912
  9. DILUTOL [TORASEMIDE] [Concomitant]
     Indication: HYPERTENSION
  10. TERIPARATIDE [Suspect]
     Active Substance: TERIPARATIDE
     Indication: OSTEOPOROSIS
     Dosage: 20 UG, DAILY
     Route: 058
     Dates: start: 20190126

REACTIONS (7)
  - Red blood cell count decreased [Unknown]
  - Serum ferritin increased [Unknown]
  - Iron metabolism disorder [Unknown]
  - C-reactive protein increased [Unknown]
  - Vomiting [Recovered/Resolved]
  - Anaemia [Unknown]
  - Red blood cell sedimentation rate increased [Unknown]

NARRATIVE: CASE EVENT DATE: 2019
